FAERS Safety Report 6732737-3 (Version None)
Quarter: 2010Q2

REPORT INFORMATION
  Report Type: 
  Country: None (occurrence: None)
  Receive Date: 20100519
  Receipt Date: 20100507
  Transmission Date: 20101027
  Serious: Yes (Death)
  Sender: FDA-Public Use
  Company Number: NL-MEDIMMUNE-MEDI-0011015

PATIENT
  Sex: Male
  Weight: 8.16 kg

DRUGS (3)
  1. SYNAGIS [Suspect]
     Route: 030
     Dates: start: 20091001, end: 20100318
  2. BACTRIM [Concomitant]
     Indication: MYOPATHY
     Route: 048
  3. MACROGOL [Concomitant]
     Indication: CONSTIPATION
     Route: 048

REACTIONS (3)
  - IMMUNODEFICIENCY [None]
  - OBSTRUCTIVE AIRWAYS DISORDER [None]
  - RESPIRATORY TRACT INFECTION [None]
